FAERS Safety Report 4291686-3 (Version None)
Quarter: 2004Q1

REPORT INFORMATION
  Report Type: 
  Country: None (occurrence: None)
  Receive Date: 20040211
  Receipt Date: 20020109
  Transmission Date: 20041129
  Serious: No
  Sender: FDA-Public Use
  Company Number: US-GLAXOSMITHKLINE-A0172418A

PATIENT
  Age: 50 Year
  Sex: Female
  Weight: 57.7 kg

DRUGS (1)
  1. IMITREX [Suspect]
     Indication: MIGRAINE
     Dosage: 6MG AS REQUIRED
     Route: 058

REACTIONS (8)
  - CHEST DISCOMFORT [None]
  - CHEST PAIN [None]
  - DRUG INEFFECTIVE [None]
  - HEADACHE [None]
  - MUSCLE CONTRACTIONS INVOLUNTARY [None]
  - PALPITATIONS [None]
  - PHARMACEUTICAL PRODUCT COMPLAINT [None]
  - THERAPEUTIC RESPONSE DECREASED [None]
